FAERS Safety Report 5804129-2 (Version None)
Quarter: 2008Q3

REPORT INFORMATION
  Report Type: 
  Country: None (occurrence: None)
  Receive Date: 20080707
  Receipt Date: 20080707
  Transmission Date: 20090109
  Serious: Yes (Life-Threatening, Other)
  Sender: FDA-Public Use
  Company Number: None

PATIENT
  Age: 58 Year
  Sex: Female
  Weight: 111.5849 kg

DRUGS (2)
  1. CIPROFLOXACIN [Suspect]
     Indication: BRONCHITIS
     Dosage: 250MG ONCE DAILY PO
     Route: 048
     Dates: start: 20071021, end: 20071026
  2. CIPROFLOXACIN [Suspect]
     Indication: URINARY TRACT INFECTION
     Dosage: 250 MG ONCE DAILY PO
     Route: 048
     Dates: start: 20080220, end: 20080220

REACTIONS (7)
  - DYSGRAPHIA [None]
  - DYSSTASIA [None]
  - FALL [None]
  - GAIT DISTURBANCE [None]
  - MALAISE [None]
  - UNEMPLOYMENT [None]
  - VERTIGO [None]
